FAERS Safety Report 9131756 (Version 1)
Quarter: 2013Q1

REPORT INFORMATION
  Report Type: Report from Study
  Country: CA (occurrence: CA)
  Receive Date: 20130301
  Receipt Date: 20130301
  Transmission Date: 20140127
  Serious: Yes (Other)
  Sender: FDA-Public Use
  Company Number: CA-BAYER-2013-026224

PATIENT
  Age: 53 Year
  Sex: Male

DRUGS (11)
  1. BETASERON [Suspect]
     Indication: MULTIPLE SCLEROSIS
     Dosage: UNK
     Dates: start: 19980201
  2. ARTHROTEC [DICLOFENAC SODIUM] [Concomitant]
     Dosage: 50MG./200UG
  3. AMANTADINE [Concomitant]
     Dosage: 100 MG, BID
  4. ATENOLOL [Concomitant]
     Dosage: 50 MG, OD
  5. FUROSEMIDE [Concomitant]
     Dosage: 20 MG, OD
  6. ENDOCET [Concomitant]
     Dosage: 5MG/325MG PRN
  7. MORPHINE [Concomitant]
     Dosage: 60 MG, TID
  8. MORPHINE [Concomitant]
     Dosage: 30 MG, TID
  9. IMIPRAMINE [Concomitant]
     Dosage: 10MG 3 TABS AT HS
  10. VITAMIN B12 [Concomitant]
     Dosage: OD
  11. VITAMIN D [Concomitant]
     Dosage: OD

REACTIONS (7)
  - Multiple sclerosis [None]
  - Basedow^s disease [None]
  - Influenza [Not Recovered/Not Resolved]
  - Pain [None]
  - Unevaluable event [None]
  - Oedema peripheral [None]
  - Hyperhidrosis [Not Recovered/Not Resolved]
